FAERS Safety Report 9356316 (Version 1)
Quarter: 2013Q2

REPORT INFORMATION
  Report Type: Spontaneous
  Country: US (occurrence: US)
  Receive Date: 20130619
  Receipt Date: 20130619
  Transmission Date: 20140414
  Serious: Yes (Other)
  Sender: FDA-Public Use
  Company Number: US-AMGEN-USASP2013042114

PATIENT
  Age: 64 Year
  Sex: Female

DRUGS (2)
  1. ENBREL [Suspect]
     Indication: RHEUMATOID ARTHRITIS
     Dosage: 50 MG, QWK
     Route: 065
     Dates: start: 20050101, end: 20130410
  2. HYDROXYCHLOROQUINE [Concomitant]
     Dosage: 200 MG, BID

REACTIONS (8)
  - Clostridium difficile infection [Recovered/Resolved]
  - Infected bites [Recovered/Resolved]
  - Laceration [Recovered/Resolved]
  - Dehydration [Recovered/Resolved]
  - Diarrhoea [Not Recovered/Not Resolved]
  - Sweat gland infection [Recovered/Resolved]
  - Localised infection [Recovered/Resolved]
  - Paronychia [Recovered/Resolved]
